FAERS Safety Report 17793945 (Version 1)
Quarter: 2020Q2

REPORT INFORMATION
  Report Type: Spontaneous
  Country: US (occurrence: US)
  Receive Date: 20200515
  Receipt Date: 20200515
  Transmission Date: 20200714
  Serious: No
  Sender: FDA-Public Use
  Company Number: US-THE RITEDOSE CORPORATION-2019RIT000152

PATIENT

DRUGS (2)
  1. LEVALBUTEROL. [Suspect]
     Active Substance: LEVALBUTEROL
     Indication: CHRONIC OBSTRUCTIVE PULMONARY DISEASE
     Dosage: 1 VIAL, QID
     Route: 055
     Dates: start: 201801
  2. IPRATROPIUM BROMIDE INHALATION SOLUTION [Concomitant]
     Active Substance: IPRATROPIUM BROMIDE
     Indication: PRODUCT USED FOR UNKNOWN INDICATION
     Dosage: UNK
     Route: 055

REACTIONS (2)
  - Skin discolouration [Not Recovered/Not Resolved]
  - Product use in unapproved indication [Unknown]
